FAERS Safety Report 25341385 (Version 1)
Quarter: 2025Q2

REPORT INFORMATION
  Report Type: Spontaneous
  Country: JP (occurrence: JP)
  Receive Date: 20250521
  Receipt Date: 20250521
  Transmission Date: 20250717
  Serious: Yes (Hospitalization)
  Sender: MYLAN
  Company Number: JP-MYLANLABS-2025M1042514

PATIENT
  Age: 17 Year
  Sex: Male

DRUGS (36)
  1. TACROLIMUS [Suspect]
     Active Substance: TACROLIMUS
     Indication: Colitis ulcerative
  2. TACROLIMUS [Suspect]
     Active Substance: TACROLIMUS
     Route: 065
  3. TACROLIMUS [Suspect]
     Active Substance: TACROLIMUS
     Route: 065
  4. TACROLIMUS [Suspect]
     Active Substance: TACROLIMUS
  5. PREDNISOLONE [Suspect]
     Active Substance: PREDNISOLONE
     Indication: Colitis ulcerative
  6. PREDNISOLONE [Suspect]
     Active Substance: PREDNISOLONE
     Route: 065
  7. PREDNISOLONE [Suspect]
     Active Substance: PREDNISOLONE
     Route: 065
  8. PREDNISOLONE [Suspect]
     Active Substance: PREDNISOLONE
  9. LIALDA [Suspect]
     Active Substance: MESALAMINE
     Indication: Colitis ulcerative
  10. LIALDA [Suspect]
     Active Substance: MESALAMINE
     Route: 065
  11. LIALDA [Suspect]
     Active Substance: MESALAMINE
     Route: 065
  12. LIALDA [Suspect]
     Active Substance: MESALAMINE
  13. AZATHIOPRINE [Suspect]
     Active Substance: AZATHIOPRINE
     Indication: Colitis ulcerative
  14. AZATHIOPRINE [Suspect]
     Active Substance: AZATHIOPRINE
     Route: 065
  15. AZATHIOPRINE [Suspect]
     Active Substance: AZATHIOPRINE
     Route: 065
  16. AZATHIOPRINE [Suspect]
     Active Substance: AZATHIOPRINE
  17. INFLIXIMAB [Suspect]
     Active Substance: INFLIXIMAB
     Indication: Colitis ulcerative
  18. INFLIXIMAB [Suspect]
     Active Substance: INFLIXIMAB
  19. INFLIXIMAB [Suspect]
     Active Substance: INFLIXIMAB
     Route: 065
  20. INFLIXIMAB [Suspect]
     Active Substance: INFLIXIMAB
     Route: 065
  21. INFLIXIMAB [Suspect]
     Active Substance: INFLIXIMAB
  22. INFLIXIMAB [Suspect]
     Active Substance: INFLIXIMAB
  23. INFLIXIMAB [Suspect]
     Active Substance: INFLIXIMAB
     Route: 042
  24. INFLIXIMAB [Suspect]
     Active Substance: INFLIXIMAB
     Route: 042
  25. GOLIMUMAB [Suspect]
     Active Substance: GOLIMUMAB
     Indication: Colitis ulcerative
  26. GOLIMUMAB [Suspect]
     Active Substance: GOLIMUMAB
     Route: 065
  27. GOLIMUMAB [Suspect]
     Active Substance: GOLIMUMAB
     Route: 065
  28. GOLIMUMAB [Suspect]
     Active Substance: GOLIMUMAB
  29. USTEKINUMAB [Suspect]
     Active Substance: USTEKINUMAB
     Indication: Colitis ulcerative
  30. USTEKINUMAB [Suspect]
     Active Substance: USTEKINUMAB
     Route: 065
  31. USTEKINUMAB [Suspect]
     Active Substance: USTEKINUMAB
     Route: 065
  32. USTEKINUMAB [Suspect]
     Active Substance: USTEKINUMAB
  33. UPADACITINIB [Suspect]
     Active Substance: UPADACITINIB
     Indication: Colitis ulcerative
  34. UPADACITINIB [Suspect]
     Active Substance: UPADACITINIB
     Route: 065
  35. UPADACITINIB [Suspect]
     Active Substance: UPADACITINIB
     Route: 065
  36. UPADACITINIB [Suspect]
     Active Substance: UPADACITINIB

REACTIONS (1)
  - Drug ineffective [Unknown]
